FAERS Safety Report 8794780 (Version 2)
Quarter: 2015Q2

REPORT INFORMATION
  Report Type: Report from Study
  Country: US (occurrence: US)
  Receive Date: 20120917
  Receipt Date: 20150623
  Transmission Date: 20150821
  Serious: Yes (Death)
  Sender: FDA-Public Use
  Company Number: US-ROCHE-1129340

PATIENT
  Sex: Female

DRUGS (16)
  1. AVASTIN [Suspect]
     Active Substance: BEVACIZUMAB
     Indication: BREAST CANCER FEMALE
     Dosage: 06/SEP/2005, 08/NOV/2005
     Route: 042
     Dates: start: 20050311
  2. AVASTIN [Suspect]
     Active Substance: BEVACIZUMAB
     Indication: BONE CANCER
     Route: 042
  3. DECADRON [Concomitant]
     Active Substance: DEXAMETHASONE
     Route: 065
  4. ADRIAMYCIN [Concomitant]
     Active Substance: DOXORUBICIN HYDROCHLORIDE
     Route: 065
  5. GEMZAR [Concomitant]
     Active Substance: GEMCITABINE HYDROCHLORIDE
  6. AVASTIN [Suspect]
     Active Substance: BEVACIZUMAB
     Indication: HAEMATOLOGICAL MALIGNANCY
     Route: 042
  7. ARANESP [Concomitant]
     Active Substance: DARBEPOETIN ALFA
     Route: 042
  8. PROCRIT [Concomitant]
     Active Substance: ERYTHROPOIETIN
     Route: 065
  9. BENADRYL [Concomitant]
     Active Substance: DIPHENHYDRAMINE HYDROCHLORIDE
     Route: 065
  10. TAXOTERE [Concomitant]
     Active Substance: DOCETAXEL
     Route: 065
  11. AVASTIN [Suspect]
     Active Substance: BEVACIZUMAB
     Indication: BONE CANCER
     Route: 042
  12. CIMETIDINE [Concomitant]
     Active Substance: CIMETIDINE
     Route: 065
  13. ARANESP [Concomitant]
     Active Substance: DARBEPOETIN ALFA
     Route: 042
  14. CARBOPLATIN. [Concomitant]
     Active Substance: CARBOPLATIN
  15. KYTRIL [Concomitant]
     Active Substance: GRANISETRON HYDROCHLORIDE
     Route: 048
  16. HEPARIN [Concomitant]
     Active Substance: HEPARIN SODIUM
     Route: 065

REACTIONS (5)
  - Fatigue [Unknown]
  - Urine analysis abnormal [Unknown]
  - Death [Fatal]
  - Off label use [Unknown]
  - Pain [Unknown]
